FAERS Safety Report 23119161 (Version 1)
Quarter: 2023Q4

REPORT INFORMATION
  Report Type: Spontaneous
  Country: US (occurrence: US)
  Receive Date: 20231028
  Receipt Date: 20231028
  Transmission Date: 20240110
  Serious: No
  Sender: FDA-Public Use
  Company Number: US-SANDOZ-SDZ2023US047327

PATIENT
  Sex: Female

DRUGS (4)
  1. LEFLUNOMIDE [Suspect]
     Active Substance: LEFLUNOMIDE
     Indication: Psoriasis
     Dosage: UNK
     Route: 065
     Dates: start: 201805, end: 202007
  2. LEFLUNOMIDE [Suspect]
     Active Substance: LEFLUNOMIDE
     Dosage: UNK
     Route: 065
     Dates: start: 202008
  3. NAPROXEN [Suspect]
     Active Substance: NAPROXEN
     Indication: Psoriasis
     Route: 065
  4. NAPROXEN [Suspect]
     Active Substance: NAPROXEN
     Indication: Psoriasis
     Route: 065

REACTIONS (1)
  - Drug ineffective [Unknown]
